FAERS Safety Report 24776552 (Version 1)
Quarter: 2024Q4

REPORT INFORMATION
  Report Type: Spontaneous
  Country: FR (occurrence: FR)
  Receive Date: 20241226
  Receipt Date: 20241226
  Transmission Date: 20250114
  Serious: Yes (Hospitalization)
  Sender: TEVA
  Company Number: None

PATIENT
  Age: 52 Year
  Sex: Female

DRUGS (5)
  1. CLOZAPINE [Suspect]
     Active Substance: CLOZAPINE
     Indication: Mental disorder
     Route: 048
     Dates: start: 20240404, end: 20240410
  2. CLOZAPINE [Suspect]
     Active Substance: CLOZAPINE
     Indication: Mental disorder
     Route: 048
     Dates: start: 20240411, end: 20240413
  3. CLOZAPINE [Suspect]
     Active Substance: CLOZAPINE
     Indication: Mental disorder
     Route: 048
     Dates: start: 20220810, end: 20240403
  4. DIAZEPAM [Concomitant]
     Active Substance: DIAZEPAM
     Indication: Mental disorder
     Route: 048
     Dates: end: 20240410
  5. TERALITHE [Suspect]
     Active Substance: LITHIUM CARBONATE
     Indication: Mental disorder
     Route: 048
     Dates: start: 2013

REACTIONS (1)
  - Generalised tonic-clonic seizure [Recovered/Resolved]

NARRATIVE: CASE EVENT DATE: 20240413
